FAERS Safety Report 22278242 (Version 1)
Quarter: 2023Q2

REPORT INFORMATION
  Report Type: Spontaneous
  Country: US (occurrence: None)
  Receive Date: 20230502
  Receipt Date: 20230502
  Transmission Date: 20230721
  Serious: Yes (Death)
  Sender: FDA-Public Use
  Company Number: None

PATIENT
  Age: 66 Year
  Sex: Female
  Weight: 50.3 kg

DRUGS (1)
  1. CAPECITABINE [Suspect]
     Active Substance: CAPECITABINE
     Indication: Breast cancer female
     Dosage: OTHER QUANTITY : 1.5G IN AM/1G IN P;?FREQUENCY : TWICE A DAY;?
     Route: 048
     Dates: start: 20230317, end: 20230413

REACTIONS (1)
  - Death [None]

NARRATIVE: CASE EVENT DATE: 20230413
